FAERS Safety Report 8827589 (Version 1)
Quarter: 2012Q4

REPORT INFORMATION
  Report Type: 
  Country: CN (occurrence: CN)
  Receive Date: 20121008
  Receipt Date: 20121008
  Transmission Date: 20130627
  Serious: Yes (Hospitalization)
  Sender: FDA-Public Use
  Company Number: CN-JNJFOC-20121002184

PATIENT
  Age: 49 Year
  Sex: Female

DRUGS (2)
  1. TYLENOL [Suspect]
     Route: 048
  2. TYLENOL [Suspect]
     Indication: ANALGESIC THERAPY
     Route: 048
     Dates: start: 20100206, end: 20100207

REACTIONS (3)
  - Urticaria [Recovered/Resolved]
  - Urticaria [None]
  - Rash [None]
